FAERS Safety Report 24717114 (Version 2)
Quarter: 2024Q4

REPORT INFORMATION
  Report Type: Spontaneous
  Country: ES (occurrence: None)
  Receive Date: 20241210
  Receipt Date: 20241213
  Transmission Date: 20250114
  Serious: Yes (Life-Threatening)
  Sender: ALEXION PHARMACEUTICALS
  Company Number: ES-ASTRAZENECA-202411GLO021376ES

PATIENT
  Age: 46 Year

DRUGS (10)
  1. OMEPRAZOLE [Suspect]
     Active Substance: OMEPRAZOLE
     Indication: Product used for unknown indication
     Dosage: 20 MILLIGRAM
  2. OMEPRAZOLE [Suspect]
     Active Substance: OMEPRAZOLE
     Dosage: 20 MILLIGRAM
     Route: 048
  3. OMEPRAZOLE [Suspect]
     Active Substance: OMEPRAZOLE
     Dosage: 20 MILLIGRAM
  4. OMEPRAZOLE [Suspect]
     Active Substance: OMEPRAZOLE
     Dosage: 20 MILLIGRAM
     Route: 048
  5. RIZATRIPTAN BENZOATE [Concomitant]
     Active Substance: RIZATRIPTAN BENZOATE
     Indication: Malaise
     Dosage: 10 MILLIGRAM, Q72H
     Route: 048
  6. RIZATRIPTAN BENZOATE [Concomitant]
     Active Substance: RIZATRIPTAN BENZOATE
     Dosage: 10 MILLIGRAM, Q72H
  7. DEXKETOPROFEN [Concomitant]
     Active Substance: DEXKETOPROFEN
     Indication: Malaise
     Dosage: 25 MILLIGRAM
     Route: 048
  8. DEXKETOPROFEN [Concomitant]
     Active Substance: DEXKETOPROFEN
     Dosage: 25 MILLIGRAM
  9. Flatoril [Concomitant]
     Indication: Flatulence
     Dosage: 0.5 MILLIGRAM
     Route: 048
  10. Flatoril [Concomitant]
     Dosage: 0.5 MILLIGRAM

REACTIONS (3)
  - Urticaria [Recovering/Resolving]
  - Dyspnoea [Recovering/Resolving]
  - Tongue oedema [Recovering/Resolving]
